FAERS Safety Report 6401546-7 (Version None)
Quarter: 2009Q4

REPORT INFORMATION
  Report Type: 
  Country: None (occurrence: None)
  Receive Date: 20091009
  Receipt Date: 20091001
  Transmission Date: 20100525
  Serious: Yes (Life-Threatening, Other)
  Sender: FDA-Public Use
  Company Number: 2009AL006392

PATIENT
  Age: 65 Year
  Sex: Female

DRUGS (2)
  1. IBUPROFEN   USP     ORAL SUSPENSION USP, 100 MG/5 [Suspect]
     Indication: ARTHRALGIA
     Dosage: 40 MG; PRN; PO
     Route: 048
  2. BENDROFLUMETHAZIDE [Concomitant]

REACTIONS (3)
  - GASTRIC ULCER [None]
  - GASTROINTESTINAL HAEMORRHAGE [None]
  - HYPOVOLAEMIC SHOCK [None]
